FAERS Safety Report 12331182 (Version 1)
Quarter: 2016Q2

REPORT INFORMATION
  Report Type: Spontaneous
  Country: GB (occurrence: GB)
  Receive Date: 20160504
  Receipt Date: 20160504
  Transmission Date: 20160815
  Serious: Yes (Other)
  Sender: FDA-Public Use
  Company Number: GB-DRREDDYS-GER/UKI/16/0079214

PATIENT
  Sex: Male

DRUGS (1)
  1. CLOPIDOGREL [Suspect]
     Active Substance: CLOPIDOGREL BISULFATE
     Indication: PRODUCT USED FOR UNKNOWN INDICATION
     Route: 065

REACTIONS (11)
  - Mouth swelling [Unknown]
  - Eye disorder [Unknown]
  - Sensory loss [Unknown]
  - Facial paralysis [Unknown]
  - Headache [Unknown]
  - Malaise [Unknown]
  - Myalgia [Unknown]
  - Abdominal pain upper [Unknown]
  - Amnesia [Unknown]
  - Haemorrhage [Unknown]
  - Dizziness [Unknown]
